FAERS Safety Report 6277668-0 (Version None)
Quarter: 2009Q3

REPORT INFORMATION
  Report Type: 
  Country: None (occurrence: None)
  Receive Date: 20090722
  Receipt Date: 20090710
  Transmission Date: 20100115
  Serious: Yes (Disabling)
  Sender: FDA-Public Use
  Company Number: DE-ELI_LILLY_AND_COMPANY-DE200906005977

PATIENT
  Sex: Male
  Weight: 62 kg

DRUGS (5)
  1. ZYPREXA [Suspect]
     Indication: SCHIZOPHRENIA, PARANOID TYPE
     Dosage: 40 MG, DAILY (1/D)
     Route: 048
     Dates: start: 20070101, end: 20090301
  2. HALOPERIDOL [Concomitant]
     Indication: SCHIZOPHRENIA, PARANOID TYPE
     Dosage: 5 MG, 3/D
     Dates: start: 20070101, end: 20090301
  3. QUETIAPINE FUMARATE [Concomitant]
     Indication: SCHIZOPHRENIA, PARANOID TYPE
     Dosage: 800 UNK, UNK
     Dates: start: 20090301
  4. AMISULPRID [Concomitant]
     Indication: SCHIZOPHRENIA, PARANOID TYPE
     Dosage: 600 D/F, UNK
     Dates: start: 20090301
  5. TIAPRID [Concomitant]

REACTIONS (2)
  - OVERDOSE [None]
  - RABBIT SYNDROME [None]
